FAERS Safety Report 24410884 (Version 2)
Quarter: 2024Q4

REPORT INFORMATION
  Report Type: Report from Study
  Country: MX (occurrence: MX)
  Receive Date: 20241008
  Receipt Date: 20241011
  Transmission Date: 20250115
  Serious: Yes (Hospitalization, Other)
  Sender: JOHNSON AND JOHNSON
  Company Number: MX-JNJFOC-20240956379

PATIENT
  Age: 82 Year
  Sex: Female
  Weight: 44 kg

DRUGS (12)
  1. STELARA [Suspect]
     Active Substance: USTEKINUMAB
     Indication: Crohn^s disease
     Route: 065
     Dates: start: 201806, end: 201907
  2. STELARA [Suspect]
     Active Substance: USTEKINUMAB
     Indication: Crohn^s disease
     Route: 058
     Dates: start: 20220513
  3. STELARA [Suspect]
     Active Substance: USTEKINUMAB
  4. ESOMEPRAZOLE [Concomitant]
     Active Substance: ESOMEPRAZOLE
  5. TRIMEBUTINE [Concomitant]
     Active Substance: TRIMEBUTINE
  6. CALCITRIOL [Concomitant]
     Active Substance: CALCITRIOL
  7. ERYTHROPOIETIN [Concomitant]
     Active Substance: ERYTHROPOIETIN
  8. RIFAXIMIN [Concomitant]
     Active Substance: RIFAXIMIN
     Dates: end: 202301
  9. RIFAXIMIN [Concomitant]
     Active Substance: RIFAXIMIN
     Dates: start: 202303
  10. HYDROCHLOROTHIAZIDE [Concomitant]
     Active Substance: HYDROCHLOROTHIAZIDE
  11. LEVOTHYROXINE [Concomitant]
     Active Substance: LEVOTHYROXINE
  12. DEFLAZACORT [Concomitant]
     Active Substance: DEFLAZACORT

REACTIONS (6)
  - Gastrointestinal haemorrhage [Recovering/Resolving]
  - Bile duct stone [Unknown]
  - Crohn^s disease [Unknown]
  - Diverticulum intestinal [Unknown]
  - Weight increased [Unknown]
  - Treatment failure [Unknown]

NARRATIVE: CASE EVENT DATE: 20180801
